FAERS Safety Report 7792834-0 (Version None)
Quarter: 2011Q4

REPORT INFORMATION
  Report Type: 
  Country: None (occurrence: None)
  Receive Date: 20111003
  Receipt Date: 20110922
  Transmission Date: 20120403
  Serious: Yes (Hospitalization)
  Sender: FDA-Public Use
  Company Number: ES-GLAXOSMITHKLINE-B0487830A

PATIENT
  Age: 55 Year
  Sex: Female

DRUGS (5)
  1. TRAZODONE HCL [Concomitant]
     Indication: DEPRESSION
     Dosage: 25MG PER DAY
     Dates: start: 20070401
  2. LAMICTAL [Suspect]
     Indication: DEPRESSION
     Dosage: 50MG PER DAY
     Route: 048
     Dates: start: 20070612
  3. LORAZEPAM [Concomitant]
     Indication: ANXIETY
     Dosage: 1MG PER DAY
     Route: 048
     Dates: start: 20070612, end: 20070702
  4. DOGMATIL [Concomitant]
     Indication: DIZZINESS
     Dosage: 5ML PER DAY
     Route: 048
     Dates: start: 20070401, end: 20070701
  5. VENLAFAXINE HCL [Concomitant]
     Indication: DEPRESSION
     Dosage: 150MG PER DAY
     Route: 048
     Dates: start: 20070612, end: 20070701

REACTIONS (4)
  - LIVER DISORDER [None]
  - MUCOSAL INFLAMMATION [None]
  - RASH [None]
  - PANCYTOPENIA [None]
